FAERS Safety Report 7900812-3 (Version None)
Quarter: 2011Q4

REPORT INFORMATION
  Report Type: 
  Country: None (occurrence: None)
  Receive Date: 20111108
  Receipt Date: 20111027
  Transmission Date: 20120403
  Serious: Yes (Hospitalization, Other)
  Sender: FDA-Public Use
  Company Number: US-BAYER-2011-042297

PATIENT
  Age: 21 Year
  Sex: Female
  Weight: 164 kg

DRUGS (23)
  1. MELOXICAM [Concomitant]
     Indication: ANXIETY
  2. LEVAQUIN [Concomitant]
     Dosage: UNK
     Dates: start: 20060412, end: 20060419
  3. KLOR-CON [Concomitant]
     Dosage: UNK
     Dates: start: 20060404
  4. MORPHINE [Concomitant]
  5. MELOXICAM [Concomitant]
     Indication: BIPOLAR DISORDER
     Dosage: UNK
     Dates: start: 20060101
  6. ZYRTEC [Concomitant]
  7. DILAUDID [Concomitant]
  8. SYNTHROID [Concomitant]
  9. NEURONTIN [Concomitant]
     Dosage: UNK
     Dates: start: 20060429
  10. RISPERDAL [Concomitant]
     Indication: BIPOLAR DISORDER
     Dosage: UNK
     Dates: start: 20050101, end: 20060101
  11. LEVOTHYROXINE SODIUM [Concomitant]
     Dosage: UNK
     Dates: start: 20060207
  12. ZOLOFT [Concomitant]
     Indication: DEPRESSION
     Dosage: UNK
     Dates: start: 20060824
  13. YASMIN [Suspect]
     Indication: MENSTRUATION IRREGULAR
     Dosage: UNK
     Dates: start: 20040707, end: 20060828
  14. ZITHROMAX [Concomitant]
     Dosage: UNK
     Dates: start: 20060703
  15. CYCLOBENZAPRINE [Concomitant]
     Dosage: UNK
     Dates: start: 20080226, end: 20080601
  16. MEDROXYPROGESTERONE [Concomitant]
     Indication: UTERINE HAEMORRHAGE
     Dosage: UNK
     Dates: start: 20070417, end: 20071211
  17. FLUCONAZOLE [Concomitant]
     Dosage: UNK
     Dates: start: 20060703
  18. HYDROCHLOROTHIAZIDE [Concomitant]
     Indication: DIURETIC THERAPY
  19. ZOLOFT [Concomitant]
     Indication: ANXIETY
  20. LAMICTAL [Concomitant]
     Dosage: UNK
     Dates: start: 20060429
  21. METFORMIN HCL [Concomitant]
     Indication: POLYCYSTIC OVARIES
     Dosage: UNK
     Dates: start: 20060101
  22. HYDROCHLOROTHIAZIDE [Concomitant]
     Indication: BLOOD PRESSURE MANAGEMENT
     Dosage: UNK
     Dates: start: 20060204
  23. IBUPROFEN [Concomitant]

REACTIONS (20)
  - CHEST PAIN [None]
  - EMOTIONAL DISTRESS [None]
  - PULMONARY INFARCTION [None]
  - TACHYCARDIA [None]
  - PAIN [None]
  - HAEMORRHAGE [None]
  - VOMITING [None]
  - PULMONARY EMBOLISM [None]
  - ABDOMINAL PAIN [None]
  - ANXIETY [None]
  - EPISTAXIS [None]
  - ARRHYTHMIA [None]
  - DEEP VEIN THROMBOSIS [None]
  - ATRIAL FIBRILLATION [None]
  - HYPERHIDROSIS [None]
  - DYSPNOEA [None]
  - HEART RATE IRREGULAR [None]
  - PALPITATIONS [None]
  - BRADYCARDIA [None]
  - INJURY [None]
